FAERS Safety Report 7170834-1 (Version None)
Quarter: 2010Q4

REPORT INFORMATION
  Report Type: 
  Country: None (occurrence: None)
  Receive Date: 20101206
  Receipt Date: 20101119
  Transmission Date: 20110411
  Serious: No
  Sender: FDA-Public Use
  Company Number: 012074

PATIENT
  Age: 4 Year
  Sex: Female

DRUGS (1)
  1. OPC-41061 (TOLVAPTAN) TABLET [Suspect]
     Indication: CONGENITAL CYSTIC KIDNEY DISEASE
     Dosage: 1 DF, SINGLE, ORAL
     Route: 048
     Dates: start: 20101118, end: 20101118

REACTIONS (1)
  - ACCIDENTAL DRUG INTAKE BY CHILD [None]
